FAERS Safety Report 13180633 (Version 7)
Quarter: 2017Q3

REPORT INFORMATION
  Report Type: Spontaneous
  Country: US (occurrence: US)
  Receive Date: 20170202
  Receipt Date: 20170728
  Transmission Date: 20171127
  Serious: Yes (Other)
  Sender: FDA-Public Use
  Company Number: US-ALEXION-A201700694

PATIENT
  Sex: Female

DRUGS (2)
  1. STRENSIQ [Suspect]
     Active Substance: ASFOTASE ALFA
     Indication: HYPOPHOSPHATASIA
     Dosage: UNK, TIW
     Route: 058
     Dates: start: 20160220
  2. STRENSIQ [Suspect]
     Active Substance: ASFOTASE ALFA
     Dosage: UNK, TIW
     Route: 058

REACTIONS (11)
  - Cough [Unknown]
  - Limb discomfort [Unknown]
  - Tenderness [Unknown]
  - Gait inability [Unknown]
  - Sever^s disease [Unknown]
  - Fatigue [Unknown]
  - Contusion [Unknown]
  - Foot fracture [Unknown]
  - Pain in extremity [Unknown]
  - Gait disturbance [Unknown]
  - Discomfort [Unknown]

NARRATIVE: CASE EVENT DATE: 20170516
